FAERS Safety Report 5319082-8 (Version None)
Quarter: 2007Q2

REPORT INFORMATION
  Report Type: 
  Country: None (occurrence: None)
  Receive Date: 20070508
  Receipt Date: 20070427
  Transmission Date: 20071010
  Serious: Yes (Hospitalization)
  Sender: FDA-Public Use
  Company Number: GB-ROCHE-495774

PATIENT
  Age: 49 Year
  Sex: Male
  Weight: 104 kg

DRUGS (2)
  1. XENICAL [Suspect]
     Indication: OBESITY
     Route: 048
     Dates: start: 20060904, end: 20070301
  2. SALBUTAMOL [Concomitant]
     Indication: ASTHMA
     Dosage: DOSAGE = DAILY
     Route: 055

REACTIONS (2)
  - ANGINA PECTORIS [None]
  - THROMBOSIS [None]
